FAERS Safety Report 8818899 (Version 1)
Quarter: 2012Q4

REPORT INFORMATION
  Report Type: Spontaneous
  Country: CA (occurrence: None)
  Receive Date: 20121002
  Receipt Date: 20121002
  Transmission Date: 20130627
  Serious: Yes (Hospitalization, Other)
  Sender: FDA-Public Use
  Company Number: 2012P1059348

PATIENT
  Age: 46 Year
  Sex: Female
  Weight: 86.18 kg

DRUGS (4)
  1. TWINJECT [Suspect]
     Indication: ANAPHYLAXIS
     Route: 058
     Dates: start: 20120918
  2. VERAPAMIL [Concomitant]
  3. ZOLOFT [Concomitant]
  4. LORAZEPAM [Concomitant]

REACTIONS (6)
  - Injection site bruising [None]
  - Injection site haemorrhage [None]
  - Anxiety [None]
  - No therapeutic response [None]
  - Fatigue [None]
  - Device malfunction [None]
